FAERS Safety Report 14200465 (Version 1)
Quarter: 2017Q4

REPORT INFORMATION
  Report Type: Spontaneous
  Country: US (occurrence: US)
  Receive Date: 20171117
  Receipt Date: 20171117
  Transmission Date: 20180321
  Serious: Yes (Disabling, Other)
  Sender: FDA-Public Use
  Company Number: US-MYLANLABS-2017M1072472

PATIENT
  Age: 31 Year
  Sex: Female

DRUGS (3)
  1. CARBOPLATIN. [Suspect]
     Active Substance: CARBOPLATIN
     Indication: OVARIAN GERM CELL ENDODERMAL SINUS TUMOUR
     Dosage: 700 MG/M2 DAILY FOR 3 CONSECUTIVE DAYS, TWO CYCLES
     Route: 065
  2. ETOPOSIDE. [Suspect]
     Active Substance: ETOPOSIDE
     Dosage: 50 MG/M2 EVERY 21 DAYS, TWO CYCLES
     Route: 048
  3. ETOPOSIDE. [Suspect]
     Active Substance: ETOPOSIDE
     Indication: OVARIAN GERM CELL ENDODERMAL SINUS TUMOUR
     Dosage: 750 MG/M2 DAILY FOR 3 CONSECUTIVE DAYS, TWO CYCLES
     Route: 065

REACTIONS (2)
  - Deafness [Not Recovered/Not Resolved]
  - Extra dose administered [Unknown]
